FAERS Safety Report 17531454 (Version 3)
Quarter: 2020Q2

REPORT INFORMATION
  Report Type: Report from Study
  Country: TH (occurrence: TH)
  Receive Date: 20200311
  Receipt Date: 20200408
  Transmission Date: 20200713
  Serious: Yes (Hospitalization, Other)
  Sender: FDA-Public Use
  Company Number: TH-EXELIXIS-XL18420027970

PATIENT
  Age: 71 Year
  Sex: Female
  Weight: 52.6 kg

DRUGS (7)
  1. SAMARIN [Concomitant]
  2. ATEZOLIZUMAB. [Suspect]
     Active Substance: ATEZOLIZUMAB
     Indication: HEPATOCELLULAR CARCINOMA
     Dosage: 1200 MG, Q3WEEKS
     Route: 042
     Dates: start: 20191211
  3. HEPACAP [Concomitant]
  4. LAMIVUDINE. [Concomitant]
     Active Substance: LAMIVUDINE
  5. XL184 [Suspect]
     Active Substance: CABOZANTINIB
     Indication: HEPATOCELLULAR CARCINOMA
     Dosage: 40 MG, QD
     Route: 048
     Dates: start: 20191211
  6. TENOFOVIR [Concomitant]
     Active Substance: TENOFOVIR
  7. XL184 [Suspect]
     Active Substance: CABOZANTINIB
     Dosage: 20 MG, QOD
     Route: 048

REACTIONS (2)
  - Cholangiostomy [Recovering/Resolving]
  - Drug-induced liver injury [Recovering/Resolving]

NARRATIVE: CASE EVENT DATE: 20200304
